FAERS Safety Report 8583796-7 (Version None)
Quarter: 2012Q3

REPORT INFORMATION
  Report Type: 
  Country: None (occurrence: None)
  Receive Date: 20120810
  Receipt Date: 20120731
  Transmission Date: 20120928
  Serious: Yes (Other)
  Sender: FDA-Public Use
  Company Number: GB-009507513-1207GBR004133

PATIENT

DRUGS (2)
  1. NEXPLANON [Suspect]
     Indication: CONTRACEPTION
     Dosage: 68 MG, UNK
     Route: 058
     Dates: start: 20110217, end: 20120626
  2. TRAZODONE HCL [Concomitant]

REACTIONS (2)
  - NO ADVERSE EVENT [None]
  - DEVICE BREAKAGE [None]
